FAERS Safety Report 21365378 (Version 1)
Quarter: 2022Q3

REPORT INFORMATION
  Report Type: Spontaneous
  Country: US (occurrence: US)
  Receive Date: 20220922
  Receipt Date: 20220922
  Transmission Date: 20221027
  Serious: No
  Sender: FDA-Public Use
  Company Number: US-PFIZER INC-PV202200065880

PATIENT
  Age: 13 Year
  Sex: Male

DRUGS (1)
  1. EUCRISA [Suspect]
     Active Substance: CRISABOROLE
     Dosage: UNK UNK, 2X/DAY ((CRISABOROLE) OINTMENT, 2%, APPLY BID 30 DAYS 60 GRAM TUBE, PERIORBITAL)
     Route: 061

REACTIONS (2)
  - Eczema [Unknown]
  - Discomfort [Unknown]
